FAERS Safety Report 6140541-2 (Version None)
Quarter: 2009Q2

REPORT INFORMATION
  Report Type: 
  Country: None (occurrence: None)
  Receive Date: 20090402
  Receipt Date: 20090320
  Transmission Date: 20091009
  Serious: Yes (Other)
  Sender: FDA-Public Use
  Company Number: FR-RANBAXY-2009RR-23032

PATIENT
  Age: 8 Year
  Sex: Female

DRUGS (1)
  1. FLUOXETINE [Suspect]
     Indication: MUTISM
     Dosage: 20 MG, QD
     Dates: start: 20050601

REACTIONS (1)
  - ADRENOGENITAL SYNDROME [None]
